FAERS Safety Report 4755397-X (Version None)
Quarter: 2005Q3

REPORT INFORMATION
  Report Type: 
  Country: None (occurrence: None)
  Receive Date: 20050826
  Receipt Date: 20041214
  Transmission Date: 20060218
  Serious: Yes (Life-Threatening, Other)
  Sender: FDA-Public Use
  Company Number: USA-2003-0005624

PATIENT
  Age: 45 Year
  Sex: Female
  Weight: 89.3 kg

DRUGS (19)
  1. OXYCONTIN [Suspect]
     Indication: PAIN
     Dosage: 40 MG, BID, ORAL
     Route: 048
     Dates: start: 19980527, end: 20000101
  2. OXYIR [Concomitant]
  3. SERZONE [Concomitant]
  4. VALIUM [Concomitant]
  5. LORCET-HD [Concomitant]
  6. NEURONTIN [Concomitant]
  7. ELAVIL [Concomitant]
  8. DAYPRO [Concomitant]
  9. CARBATROL [Concomitant]
  10. VIOXX [Concomitant]
  11. PERCOCET [Concomitant]
  12. CLONIDINE [Concomitant]
  13. CELEBREX [Concomitant]
  14. ZOLOFT [Concomitant]
  15. ACCUPRIL [Concomitant]
  16. CITRUCEL [Concomitant]
  17. DULCOLAX [Concomitant]
  18. WELLBUTRIN [Concomitant]
  19. DETROL [Concomitant]

REACTIONS (37)
  - BACK PAIN [None]
  - BLADDER DISORDER [None]
  - CONDITION AGGRAVATED [None]
  - CONSTIPATION [None]
  - DEPRESSION [None]
  - DIARRHOEA [None]
  - DRUG ABUSER [None]
  - DRUG DEPENDENCE [None]
  - DRUG TOLERANCE [None]
  - DRUG WITHDRAWAL SYNDROME [None]
  - FALL [None]
  - HAEMORRHOIDS [None]
  - HEADACHE [None]
  - HYPERHIDROSIS [None]
  - INJURY [None]
  - INSOMNIA [None]
  - INTESTINAL FUNCTIONAL DISORDER [None]
  - IRRITABILITY [None]
  - LIGAMENT SPRAIN [None]
  - LIVER DISORDER [None]
  - LIVER FUNCTION TEST ABNORMAL [None]
  - MALAISE [None]
  - MICTURITION URGENCY [None]
  - NAUSEA [None]
  - NERVOUSNESS [None]
  - PAIN [None]
  - POLLAKIURIA [None]
  - PROCTALGIA [None]
  - PYURIA [None]
  - STRESS [None]
  - STRESS INCONTINENCE [None]
  - SYNCOPE [None]
  - TREMOR [None]
  - URINARY HESITATION [None]
  - VISUAL DISTURBANCE [None]
  - VOMITING [None]
  - WEIGHT DECREASED [None]
